FAERS Safety Report 10936142 (Version 5)
Quarter: 2015Q2

REPORT INFORMATION
  Report Type: Spontaneous
  Country: DE (occurrence: DE)
  Receive Date: 20150320
  Receipt Date: 20150527
  Transmission Date: 20150821
  Serious: Yes (Life-Threatening)
  Sender: FDA-Public Use
  Company Number: DE-ALEXION PHARMACEUTICALS INC-A201500855

PATIENT

DRUGS (5)
  1. PENICILLIN                         /00000901/ [Concomitant]
     Active Substance: PENICILLIN
     Indication: PRODUCT USED FOR UNKNOWN INDICATION
     Dosage: UNK
     Route: 065
  2. SOLIRIS [Suspect]
     Active Substance: ECULIZUMAB
     Indication: OFF LABEL USE
     Dosage: UNK
     Route: 042
  3. SOLIRIS [Suspect]
     Active Substance: ECULIZUMAB
     Indication: PAROXYSMAL NOCTURNAL HAEMOGLOBINURIA
     Dosage: 300 MG, SINGLE
     Route: 042
     Dates: start: 20150221, end: 20150221
  4. SOLIRIS [Suspect]
     Active Substance: ECULIZUMAB
     Indication: COMPLEMENT FACTOR DECREASED
     Dosage: 300 MG, SINGLE
     Route: 042
     Dates: start: 20150227, end: 20150227
  5. ANTIBIOTICS [Concomitant]
     Active Substance: UNSPECIFIED INGREDIENT
     Indication: PRODUCT USED FOR UNKNOWN INDICATION
     Dosage: UNK
     Route: 065

REACTIONS (7)
  - Agitation [Unknown]
  - Drug ineffective [Unknown]
  - Pruritus generalised [Not Recovered/Not Resolved]
  - Rash maculo-papular [Not Recovered/Not Resolved]
  - Malaise [Unknown]
  - Rash generalised [Not Recovered/Not Resolved]
  - Restlessness [Unknown]

NARRATIVE: CASE EVENT DATE: 20150227
